FAERS Safety Report 10765754 (Version 1)
Quarter: 2015Q1

REPORT INFORMATION
  Report Type: Spontaneous
  Country: US (occurrence: None)
  Receive Date: 20150204
  Receipt Date: 20150204
  Transmission Date: 20150721
  Serious: Yes (Disabling)
  Sender: FDA-Public Use
  Company Number: None

PATIENT
  Age: 62 Year
  Sex: Male
  Weight: 81.65 kg

DRUGS (7)
  1. VIAGRA [Suspect]
     Active Substance: SILDENAFIL CITRATE
     Indication: ERECTILE DYSFUNCTION
     Dosage: 1/3 PILL
     Route: 048
     Dates: start: 20140512, end: 20150101
  2. HCTZ [Concomitant]
     Active Substance: HYDROCHLOROTHIAZIDE
  3. COFFEE [Concomitant]
     Active Substance: ARABICA COFFEE BEAN\COFFEE BEAN
  4. FLOMAX [Concomitant]
     Active Substance: TAMSULOSIN HYDROCHLORIDE
  5. HERBAL TEAS [Concomitant]
     Active Substance: HERBALS
  6. DIOVAN [Concomitant]
     Active Substance: VALSARTAN
  7. LOVASTATIN. [Concomitant]
     Active Substance: LOVASTATIN

REACTIONS (2)
  - Deafness [None]
  - Tinnitus [None]

NARRATIVE: CASE EVENT DATE: 20140701
